FAERS Safety Report 5149854-4 (Version None)
Quarter: 2006Q4

REPORT INFORMATION
  Report Type: 
  Country: None (occurrence: None)
  Receive Date: 20061108
  Receipt Date: 20061026
  Transmission Date: 20070319
  Serious: Yes (Other)
  Sender: FDA-Public Use
  Company Number: 2006131437

PATIENT
  Age: 70 Year
  Sex: Male
  Weight: 69.8539 kg

DRUGS (5)
  1. DETROL LA [Suspect]
     Indication: INCONTINENCE
     Dosage: 4 MG (4 MG, 1 IN 1 D)
     Dates: start: 20050101
  2. ZETIA [Concomitant]
  3. TAMSULOSIN HCL [Concomitant]
  4. TOPROL-XL [Concomitant]
  5. PRILOSEC [Concomitant]

REACTIONS (2)
  - COELIAC DISEASE [None]
  - WEIGHT DECREASED [None]
